FAERS Safety Report 4780148-2 (Version None)
Quarter: 2005Q3

REPORT INFORMATION
  Report Type: 
  Country: None (occurrence: None)
  Receive Date: 20050914
  Receipt Date: 20050706
  Transmission Date: 20060218
  Serious: Yes (Other)
  Sender: FDA-Public Use
  Company Number: 163-20785-05070113

PATIENT

DRUGS (2)
  1. THALOMID [Suspect]
     Indication: CHRONIC LYMPHOCYTIC LEUKAEMIA
     Dosage: 200MG QHS DAILY FOR 28 DAYS EVERY 28 DAYS, ORAL
     Route: 048
     Dates: start: 20040420
  2. FLUDARABINE PHOSPHATE [Suspect]
     Indication: CHRONIC LYMPHOCYTIC LEUKAEMIA
     Dosage: 25 MG/M2 OVER 30 MINUTES DAILY FOR 5 DAYS EVERY 28 DAYS, INTRAVENOUS
     Route: 042
     Dates: start: 20040420

REACTIONS (3)
  - DYSPNOEA [None]
  - FATIGUE [None]
  - NEUTROPHIL COUNT DECREASED [None]
